FAERS Safety Report 14638025 (Version 1)
Quarter: 2018Q1

REPORT INFORMATION
  Report Type: Spontaneous
  Country: US (occurrence: US)
  Receive Date: 20180314
  Receipt Date: 20180314
  Transmission Date: 20180509
  Serious: No
  Sender: FDA-Public Use
  Company Number: US-VYERA PHARMACEUTICALS, LLC-2017VYE00057

PATIENT
  Age: 55 Year
  Sex: Female

DRUGS (2)
  1. DAPSONE. [Suspect]
     Active Substance: DAPSONE
     Indication: INFECTION
     Dosage: 25 MG, UP TO 4X/DAY
     Route: 048
     Dates: start: 20171031
  2. DARAPRIM [Suspect]
     Active Substance: PYRIMETHAMINE
     Indication: INFECTION
     Dosage: 50 MG, 2X/DAY
     Route: 048
     Dates: start: 20170307

REACTIONS (4)
  - Nausea [Recovered/Resolved]
  - Headache [Recovered/Resolved]
  - Pyrexia [Recovered/Resolved]
  - Dizziness [Recovered/Resolved]

NARRATIVE: CASE EVENT DATE: 20171101
